FAERS Safety Report 5651703-2 (Version None)
Quarter: 2008Q1

REPORT INFORMATION
  Report Type: 
  Country: None (occurrence: None)
  Receive Date: 20080305
  Receipt Date: 20080222
  Transmission Date: 20080703
  Serious: Yes (Hospitalization)
  Sender: FDA-Public Use
  Company Number: CA-PFIZER INC-2007089025

PATIENT
  Sex: Male
  Weight: 80 kg

DRUGS (10)
  1. SU-011,248 [Suspect]
     Indication: METASTATIC RENAL CELL CARCINOMA
     Route: 048
     Dates: start: 20060524, end: 20060711
  2. SU-011,248 [Suspect]
     Route: 048
     Dates: start: 20060712, end: 20071009
  3. SU-011,248 [Suspect]
     Route: 048
  4. LORATADINE [Concomitant]
     Route: 048
     Dates: start: 20070822
  5. OMEGA-3 [Concomitant]
     Route: 048
  6. ELTROXIN [Concomitant]
     Route: 048
  7. LOPERAMIDE HYDROCHLORIDE [Concomitant]
     Route: 048
  8. NEXIUM [Concomitant]
     Route: 048
     Dates: start: 20070726, end: 20071013
  9. NASONEX [Concomitant]
     Route: 045
     Dates: start: 20070822, end: 20080122
  10. ATACAND [Concomitant]
     Route: 048

REACTIONS (2)
  - CLOSTRIDIUM DIFFICILE COLITIS [None]
  - PSEUDOMEMBRANOUS COLITIS [None]
